FAERS Safety Report 4439928-5 (Version None)
Quarter: 2004Q3

REPORT INFORMATION
  Report Type: 
  Country: None (occurrence: None)
  Receive Date: 20040831
  Receipt Date: 20040817
  Transmission Date: 20050211
  Serious: Yes (Hospitalization)
  Sender: FDA-Public Use
  Company Number: 2004AP04360

PATIENT
  Age: 48 Year
  Sex: Male

DRUGS (10)
  1. IRESSA [Suspect]
     Indication: NON-SMALL CELL LUNG CANCER
     Dosage: 250 MG DAILY PO
     Route: 048
     Dates: start: 20040205, end: 20040209
  2. PREDONINE [Concomitant]
  3. HYPEN [Concomitant]
  4. KERLONG [Concomitant]
  5. BLOPRESS [Concomitant]
  6. TAKEPRON [Concomitant]
  7. ALPACE [Concomitant]
  8. ZYLORIC ^GLAXO WELLCOME^ [Concomitant]
  9. THEO-DUR [Concomitant]
  10. NAUZELIN [Concomitant]

REACTIONS (5)
  - COUGH [None]
  - DIARRHOEA [None]
  - NAUSEA [None]
  - PYREXIA [None]
  - RENAL FAILURE ACUTE [None]
